FAERS Safety Report 8223485-1 (Version None)
Quarter: 2012Q1

REPORT INFORMATION
  Report Type: 
  Country: None (occurrence: None)
  Receive Date: 20120321
  Receipt Date: 20120306
  Transmission Date: 20120608
  Serious: Yes (Other)
  Sender: FDA-Public Use
  Company Number: RS-JNJFOC-20120304639

PATIENT

DRUGS (1)
  1. INFLIXIMAB, RECOMBINANT [Suspect]
     Indication: INFLAMMATORY BOWEL DISEASE
     Dosage: 0,2,6 WEEKS AND THEN EVERY 8 WEEKS
     Route: 042

REACTIONS (5)
  - DRUG INEFFECTIVE [None]
  - PULMONARY TUBERCULOSIS [None]
  - DRUG INTOLERANCE [None]
  - INFECTION [None]
  - SKIN REACTION [None]
